FAERS Safety Report 4535738-9 (Version None)
Quarter: 2004Q4

REPORT INFORMATION
  Report Type: 
  Country: None (occurrence: None)
  Receive Date: 20041223
  Receipt Date: 20040122
  Transmission Date: 20050328
  Serious: No
  Sender: FDA-Public Use
  Company Number: US-GLAXOSMITHKLINE-A0494709A

PATIENT
  Age: 61 Year
  Sex: Female

DRUGS (5)
  1. FLONASE [Suspect]
     Indication: RHINITIS
     Dosage: 2SPR TWICE PER DAY
     Route: 045
     Dates: start: 20031226, end: 20040110
  2. TAMIFLU [Concomitant]
  3. AMOXICILLIN [Concomitant]
  4. LUMIGAN EYE DROPS [Concomitant]
  5. COZAAR [Concomitant]

REACTIONS (4)
  - EYE PRURITUS [None]
  - EYE REDNESS [None]
  - GLOSSODYNIA [None]
  - SWOLLEN TONGUE [None]
